FAERS Safety Report 22221604 (Version 1)
Quarter: 2023Q2

REPORT INFORMATION
  Report Type: Spontaneous
  Country: US (occurrence: US)
  Receive Date: 20230418
  Receipt Date: 20230418
  Transmission Date: 20230722
  Serious: No
  Sender: FDA-Public Use
  Company Number: US-ELI_LILLY_AND_COMPANY-US202304005699

PATIENT
  Age: 59 Year
  Sex: Female

DRUGS (4)
  1. TRULICITY [Suspect]
     Active Substance: DULAGLUTIDE
     Indication: Type 2 diabetes mellitus
     Dosage: 0.75 MG, UNKNOWN
     Route: 065
  2. BASAGLAR [Suspect]
     Active Substance: INSULIN GLARGINE
     Indication: Type 2 diabetes mellitus
     Dosage: 15 U, DAILY
     Route: 065
  3. BASAGLAR [Suspect]
     Active Substance: INSULIN GLARGINE
     Dosage: 15 U, DAILY
     Route: 065
  4. XANAX [Concomitant]
     Active Substance: ALPRAZOLAM
     Indication: Anxiety

REACTIONS (11)
  - Neuropathy peripheral [Recovered/Resolved]
  - Weight decreased [Recovered/Resolved]
  - Incorrect dose administered [Unknown]
  - Blood glucose increased [Unknown]
  - Balance disorder [Recovered/Resolved]
  - Fall [Recovered/Resolved]
  - Shoulder fracture [Recovered/Resolved]
  - Contusion [Not Recovered/Not Resolved]
  - Abdominal pain [Recovered/Resolved]
  - Fatigue [Unknown]
  - Constipation [Recovered/Resolved]

NARRATIVE: CASE EVENT DATE: 20221001
